FAERS Safety Report 10687777 (Version 4)
Quarter: 2015Q3

REPORT INFORMATION
  Report Type: Spontaneous
  Country: US (occurrence: US)
  Receive Date: 20150102
  Receipt Date: 20150706
  Transmission Date: 20151125
  Serious: Yes (Hospitalization, Other)
  Sender: FDA-Public Use
  Company Number: US-BAYER-2014-191313

PATIENT
  Age: 24 Year
  Sex: Female
  Weight: 109 kg

DRUGS (5)
  1. MIRENA [Suspect]
     Active Substance: LEVONORGESTREL
     Dosage: 20 MCG/24HR, CONT
     Route: 015
     Dates: start: 20060822, end: 20071102
  2. METRONIDAZOLE. [Concomitant]
     Active Substance: METRONIDAZOLE
  3. VICODIN [Concomitant]
     Active Substance: ACETAMINOPHEN\HYDROCODONE BITARTRATE
  4. DOXYCYCLINE. [Concomitant]
     Active Substance: DOXYCYCLINE
  5. IBUPROFEN. [Concomitant]
     Active Substance: IBUPROFEN

REACTIONS (11)
  - Device breakage [None]
  - Abdominal pain lower [None]
  - Embedded device [None]
  - Emotional distress [None]
  - Pain [None]
  - Infertility female [None]
  - Pelvic inflammatory disease [None]
  - Injury [None]
  - Depression [None]
  - Weight increased [None]
  - Complication of device removal [None]

NARRATIVE: CASE EVENT DATE: 2007
